FAERS Safety Report 16653377 (Version 1)
Quarter: 2019Q3

REPORT INFORMATION
  Report Type: Spontaneous
  Country: AR (occurrence: AR)
  Receive Date: 20190731
  Receipt Date: 20190731
  Transmission Date: 20191004
  Serious: Yes (Other)
  Sender: FDA-Public Use
  Company Number: AR-PFIZER INC-2019308746

PATIENT
  Age: 78 Year
  Sex: Male

DRUGS (2)
  1. INLYTA [Suspect]
     Active Substance: AXITINIB
     Indication: RENAL CANCER
     Dosage: 10 MG, DAILY
     Dates: start: 20190705
  2. INLYTA [Suspect]
     Active Substance: AXITINIB
     Dosage: 10 MG, DAILY
     Dates: start: 20190709

REACTIONS (6)
  - Blood pressure increased [Unknown]
  - Skin disorder [Unknown]
  - Mucosal disorder [Unknown]
  - Dyspepsia [Unknown]
  - Blood pressure fluctuation [Unknown]
  - Eating disorder [Unknown]

NARRATIVE: CASE EVENT DATE: 201907
